FAERS Safety Report 10582875 (Version 1)
Quarter: 2014Q4

REPORT INFORMATION
  Report Type: Report from Study
  Country: AU (occurrence: AU)
  Receive Date: 20141114
  Receipt Date: 20141114
  Transmission Date: 20150529
  Serious: Yes (Other)
  Sender: FDA-Public Use
  Company Number: AU-AMGEN-AUSCT2014049491

PATIENT

DRUGS (3)
  1. IRINOTECAN [Concomitant]
     Active Substance: IRINOTECAN
     Indication: COLORECTAL CANCER METASTATIC
  2. PANITUMUMAB [Suspect]
     Active Substance: PANITUMUMAB
     Indication: COLORECTAL CANCER METASTATIC
     Route: 065
  3. EVEROLIMUS [Concomitant]
     Active Substance: EVEROLIMUS
     Indication: COLORECTAL CANCER METASTATIC

REACTIONS (8)
  - Fatigue [Recovered/Resolved]
  - Erythema [Unknown]
  - Dermatitis acneiform [Unknown]
  - Alopecia [Unknown]
  - Pyrexia [Recovered/Resolved]
  - Discomfort [Unknown]
  - Diarrhoea [Recovered/Resolved]
  - Pneumothorax [Unknown]

NARRATIVE: CASE EVENT DATE: 20131107
